FAERS Safety Report 5504185-5 (Version None)
Quarter: 2007Q4

REPORT INFORMATION
  Report Type: 
  Country: None (occurrence: None)
  Receive Date: 20071101
  Receipt Date: 20071025
  Transmission Date: 20080405
  Serious: Yes (Hospitalization)
  Sender: FDA-Public Use
  Company Number: B0485806A

PATIENT
  Age: 83 Year
  Sex: Male
  Weight: 43 kg

DRUGS (14)
  1. VALTREX [Suspect]
     Indication: HERPES ZOSTER
     Dosage: 1000MG TWICE PER DAY
     Route: 048
     Dates: start: 20070902, end: 20070903
  2. LOXONIN [Concomitant]
     Indication: PAIN
     Dosage: 60MG UNKNOWN
     Route: 048
     Dates: start: 20070902, end: 20070903
  3. NU-LOTAN [Concomitant]
     Indication: HYPERTENSION
     Dosage: 50MG PER DAY
     Route: 048
  4. UNKNOWN MEDICATION [Concomitant]
     Dosage: .25MCG PER DAY
     Route: 048
  5. TICLOPIDINE HCL [Concomitant]
     Dosage: 100MG PER DAY
     Route: 048
  6. NORVASC [Concomitant]
     Indication: HYPERTENSION
     Dosage: 5MG PER DAY
     Route: 048
  7. FUROSEMIDE [Concomitant]
     Dosage: 20MG PER DAY
     Route: 048
  8. WARFARIN SODIUM [Concomitant]
     Dosage: 1G PER DAY
     Route: 048
  9. GASTROM [Concomitant]
     Dosage: 3G PER DAY
     Route: 048
  10. CALTAN [Concomitant]
     Dosage: 3000MG PER DAY
     Route: 048
  11. ACETAMOL [Concomitant]
     Dosage: 100MG PER DAY
     Route: 048
  12. SENNOSIDE [Concomitant]
     Dosage: 24MG PER DAY
     Route: 048
  13. UNKNOWN DRUG [Concomitant]
     Dosage: 20MG PER DAY
     Route: 048
  14. VIDARABINE [Concomitant]
     Route: 061
     Dates: start: 20070902

REACTIONS (6)
  - DYSARTHRIA [None]
  - ENCEPHALOPATHY [None]
  - GASTROINTESTINAL DISORDER [None]
  - HALLUCINATION [None]
  - NAUSEA [None]
  - VOMITING [None]
